FAERS Safety Report 9582693 (Version 1)
Quarter: 2013Q4

REPORT INFORMATION
  Report Type: Spontaneous
  Country: US (occurrence: US)
  Receive Date: 20131002
  Receipt Date: 20131002
  Transmission Date: 20140711
  Serious: No
  Sender: FDA-Public Use
  Company Number: US-AMGEN-USASP2013042258

PATIENT
  Age: 68 Year
  Sex: Female
  Weight: 108.39 kg

DRUGS (13)
  1. ENBREL [Suspect]
     Indication: PRODUCT USED FOR UNKNOWN INDICATION
     Dosage: 50 MG, QWK
     Route: 058
  2. LEFLUNOMIDE [Concomitant]
     Dosage: 10 MG, UNK
  3. CLONAZEPAM [Concomitant]
     Dosage: 1 MG, UNK
  4. GABAPENTIN [Concomitant]
     Dosage: 100 MG, UNK
  5. FLUOXETINE [Concomitant]
     Dosage: 20 MG, UNK
  6. METFORMIN [Concomitant]
     Dosage: 500 MG, UNK
  7. SIMVASTATIN [Concomitant]
     Dosage: 10 MG, UNK
  8. LISINOPRIL [Concomitant]
     Dosage: 10 MG, UNK
  9. CARVEDILOL [Concomitant]
     Dosage: 25 MG, UNK
  10. HYDROXYCHLOROQUINE [Concomitant]
     Dosage: 200 MG, UNK
  11. LEVOTHYROXINE [Concomitant]
     Dosage: 100 MUG, UNK
  12. BABY ASPIRIN [Concomitant]
     Dosage: 81 MG, UNK
  13. ADVAIR [Concomitant]
     Dosage: 500/50

REACTIONS (4)
  - Abdominal discomfort [Unknown]
  - Chest discomfort [Unknown]
  - Hyperhidrosis [Unknown]
  - Sinusitis [Unknown]
